FAERS Safety Report 8284482-3 (Version None)
Quarter: 2012Q2

REPORT INFORMATION
  Report Type: 
  Country: None (occurrence: None)
  Receive Date: 20120413
  Receipt Date: 20120123
  Transmission Date: 20120825
  Serious: No
  Sender: FDA-Public Use
  Company Number: US-ASTRAZENECA-2011SE74365

PATIENT
  Age: 55 Year
  Sex: Male

DRUGS (5)
  1. NARCOTIC MEDICATION [Suspect]
     Indication: BACK PAIN
     Route: 065
  2. NUCYNTA [Concomitant]
  3. PRILOSEC [Suspect]
     Indication: GASTRIC DISORDER
     Route: 048
  4. MORPHINE [Concomitant]
  5. NEXIUM [Suspect]
     Route: 048

REACTIONS (2)
  - GASTRIC DISORDER [None]
  - DRUG INEFFECTIVE [None]
